FAERS Safety Report 21596712 (Version 1)
Quarter: 2022Q4

REPORT INFORMATION
  Report Type: Other
  Country: CZ (occurrence: CZ)
  Receive Date: 20221115
  Receipt Date: 20221115
  Transmission Date: 20230112
  Serious: Yes (Hospitalization)
  Sender: FDA-Public Use
  Company Number: CZ-PFIZER INC-PV202200002560

PATIENT
  Age: 70 Year
  Sex: Male
  Weight: 68 kg

DRUGS (31)
  1. VINCRISTINE [Suspect]
     Active Substance: VINCRISTINE
     Indication: Diffuse large B-cell lymphoma stage III
     Dosage: 1.4 MG/M2, 1Q3W, (C2D1)
     Route: 042
     Dates: start: 20220516, end: 20220516
  2. VINCRISTINE [Suspect]
     Active Substance: VINCRISTINE
     Indication: Diffuse large B-cell lymphoma
     Dosage: 1.4 MILLIGRAM/SQ. METER, 1 EVERY 3 WEEKS/DATE OF LAST DOSE PRIOR TO EVENT: 16/MAY/2022
     Route: 065
     Dates: start: 20220516, end: 20220516
  3. VINCRISTINE [Suspect]
     Active Substance: VINCRISTINE
     Dosage: 1.4 MG/M2, 1Q3W, (C2D1)?DATE OF LAST DOSE PRIOR TO EVENT: 16MAY2022
     Route: 042
     Dates: start: 20220610, end: 20220610
  4. RITUXIMAB [Suspect]
     Active Substance: RITUXIMAB
     Indication: Diffuse large B-cell lymphoma stage III
     Dosage: 375 MG/M2, 1Q3W, (C1D1)
     Route: 041
     Dates: start: 20220516, end: 20220516
  5. RITUXIMAB [Suspect]
     Active Substance: RITUXIMAB
     Indication: Diffuse large B-cell lymphoma
     Route: 041
  6. RITUXIMAB [Suspect]
     Active Substance: RITUXIMAB
     Dosage: 375 MG/M2, 1Q3W, (C2D1)
     Route: 041
     Dates: start: 20220610, end: 20220610
  7. EPCORITAMAB [Suspect]
     Active Substance: EPCORITAMAB
     Indication: Diffuse large B-cell lymphoma stage III
     Dosage: REGIMEN #1: PRIMING DOSE 0.16 MG, SINGLE
     Route: 058
  8. EPCORITAMAB [Suspect]
     Active Substance: EPCORITAMAB
     Dosage: REGIMEN #2: INTERMEDIATE DOSE 0.8 MG, SINGLE
     Route: 058
     Dates: start: 20220523, end: 20220523
  9. EPCORITAMAB [Suspect]
     Active Substance: EPCORITAMAB
     Route: 065
  10. EPCORITAMAB [Suspect]
     Active Substance: EPCORITAMAB
     Route: 065
  11. EPCORITAMAB [Suspect]
     Active Substance: EPCORITAMAB
     Route: 065
     Dates: start: 20220531
  12. PREDNISONE [Suspect]
     Active Substance: PREDNISONE
     Indication: Diffuse large B-cell lymphoma stage III
     Dosage: 100 MG, QD
     Route: 048
     Dates: start: 20220611, end: 20220614
  13. PREDNISONE [Suspect]
     Active Substance: PREDNISONE
     Indication: Diffuse large B-cell lymphoma
     Dosage: 100 MG, QD
     Route: 048
     Dates: start: 20220517, end: 20220520
  14. DOXORUBICIN [Suspect]
     Active Substance: DOXORUBICIN
     Indication: Diffuse large B-cell lymphoma stage III
     Dosage: 50 MG/M2, 1Q3W, (C1D1)
     Route: 042
     Dates: start: 20220516, end: 20220516
  15. DOXORUBICIN [Suspect]
     Active Substance: DOXORUBICIN
     Indication: Diffuse large B-cell lymphoma
     Route: 065
  16. DOXORUBICIN [Suspect]
     Active Substance: DOXORUBICIN
     Dosage: 50 MG/M2, 1Q3W, (C1D1)
     Route: 042
     Dates: start: 20220610, end: 20220610
  17. CYCLOPHOSPHAMIDE [Suspect]
     Active Substance: CYCLOPHOSPHAMIDE
     Indication: Diffuse large B-cell lymphoma stage III
     Dosage: 750 MG/M2, 1Q3W, (C1D1)
     Route: 042
     Dates: start: 20220516, end: 20220516
  18. CYCLOPHOSPHAMIDE [Suspect]
     Active Substance: CYCLOPHOSPHAMIDE
     Indication: Diffuse large B-cell lymphoma
     Route: 065
  19. CYCLOPHOSPHAMIDE [Suspect]
     Active Substance: CYCLOPHOSPHAMIDE
     Dosage: 750 MG/M2, 1Q3W, (C2D1)
     Route: 042
     Dates: start: 20220610, end: 20220610
  20. TONANDA [Concomitant]
     Indication: Product used for unknown indication
     Dosage: UNK
     Dates: start: 2015
  21. AMOXICILLIN TRIHYDRATE [Concomitant]
     Active Substance: AMOXICILLIN
     Indication: Product used for unknown indication
     Dosage: UNK
     Dates: start: 20220501
  22. AMINOPHYLLINE [Concomitant]
     Active Substance: AMINOPHYLLINE
     Indication: Product used for unknown indication
     Dosage: UNK
     Dates: start: 2015
  23. CONTROLOC [Concomitant]
     Active Substance: PANTOPRAZOLE SODIUM
     Indication: Product used for unknown indication
     Dosage: UNK
     Dates: start: 20220424
  24. ONDANSETRON [Concomitant]
     Active Substance: ONDANSETRON
     Indication: Product used for unknown indication
     Dosage: UNK
     Dates: start: 20220610
  25. METFORMIN HYDROCHLORIDE [Concomitant]
     Active Substance: METFORMIN HYDROCHLORIDE
     Indication: Product used for unknown indication
     Dosage: UNK
     Dates: start: 2015
  26. DIGOXIN [Concomitant]
     Active Substance: DIGOXIN
     Indication: Product used for unknown indication
     Dosage: UNK
     Dates: start: 2017
  27. SOLU-MEDROL [Concomitant]
     Active Substance: METHYLPREDNISOLONE SODIUM SUCCINATE
     Indication: Prophylaxis
     Dosage: 80 MG
     Dates: start: 20220516, end: 20220516
  28. SOLU-MEDROL [Concomitant]
     Active Substance: METHYLPREDNISOLONE SODIUM SUCCINATE
     Dosage: 80 MG
     Dates: start: 20220610, end: 20220610
  29. ACETAMINOPHEN [Concomitant]
     Active Substance: ACETAMINOPHEN
     Route: 048
     Dates: start: 20220523, end: 20220523
  30. ACLIDINIUM BROMIDE\FORMOTEROL FUMARATE [Concomitant]
     Active Substance: ACLIDINIUM BROMIDE\FORMOTEROL FUMARATE
     Dosage: UNK
     Dates: start: 20220424
  31. BISULEPIN [Concomitant]
     Active Substance: BISULEPIN
     Route: 048
     Dates: start: 20220523, end: 20220523

REACTIONS (3)
  - Cytokine release syndrome [Recovered/Resolved]
  - C-reactive protein increased [Recovered/Resolved]
  - Pneumonia [Recovered/Resolved]

NARRATIVE: CASE EVENT DATE: 20220606
